FAERS Safety Report 10094496 (Version 3)
Quarter: 2018Q1

REPORT INFORMATION
  Report Type: Report from Study
  Country: US (occurrence: US)
  Receive Date: 20140422
  Receipt Date: 20180328
  Transmission Date: 20180508
  Serious: Yes (Hospitalization, Other)
  Sender: FDA-Public Use
  Company Number: US-ROCHE-1384542

PATIENT
  Age: 13 Year
  Sex: Male
  Weight: 60.55 kg

DRUGS (15)
  1. NUTROPIN AQ [Suspect]
     Active Substance: SOMATROPIN
     Route: 058
  2. NASONEX [Concomitant]
     Active Substance: MOMETASONE FUROATE
     Route: 065
  3. ZYRTEC [Concomitant]
     Active Substance: CETIRIZINE HYDROCHLORIDE
     Route: 048
  4. CEFTRIAXONE SODIUM. [Concomitant]
     Active Substance: CEFTRIAXONE SODIUM
  5. NUTROPIN AQ [Suspect]
     Active Substance: SOMATROPIN
     Route: 058
     Dates: start: 20110419, end: 20140811
  6. ZOSYN [Concomitant]
     Active Substance: PIPERACILLIN SODIUM\TAZOBACTAM SODIUM
  7. TOPAMAX [Concomitant]
     Active Substance: TOPIRAMATE
     Route: 048
  8. KEPPRA [Concomitant]
     Active Substance: LEVETIRACETAM
  9. VANCOMYCIN [Concomitant]
     Active Substance: VANCOMYCIN
  10. MOTRIN [Concomitant]
     Active Substance: IBUPROFEN
     Route: 048
  11. NUTROPIN AQ [Suspect]
     Active Substance: SOMATROPIN
     Indication: GROWTH RETARDATION
     Dosage: 10MG/ML
     Route: 058
     Dates: start: 20101216, end: 201301
  12. NUTROPIN AQ [Suspect]
     Active Substance: SOMATROPIN
     Route: 058
     Dates: start: 201303
  13. NUTROPIN AQ [Suspect]
     Active Substance: SOMATROPIN
     Route: 058
     Dates: start: 20101216, end: 20110401
  14. NUTROPIN AQ [Suspect]
     Active Substance: SOMATROPIN
     Route: 058
  15. NUTROPIN AQ [Suspect]
     Active Substance: SOMATROPIN
     Route: 058
     Dates: start: 201012

REACTIONS (8)
  - Hepatic enzyme increased [Recovering/Resolving]
  - Eye contusion [Unknown]
  - Eye swelling [Unknown]
  - Brain abscess [Unknown]
  - Subdural empyema [Recovered/Resolved]
  - Seizure [Unknown]
  - Arthralgia [Unknown]
  - Eye injury [Unknown]

NARRATIVE: CASE EVENT DATE: 201301
